FAERS Safety Report 25576939 (Version 1)
Quarter: 2025Q3

REPORT INFORMATION
  Report Type: Spontaneous
  Country: CN (occurrence: CN)
  Receive Date: 20250718
  Receipt Date: 20250718
  Transmission Date: 20251021
  Serious: Yes (Other)
  Sender: PFIZER
  Company Number: CN-PFIZER INC-PV202500085182

PATIENT
  Age: 59 Year
  Sex: Male
  Weight: 65.8 kg

DRUGS (1)
  1. LINEZOLID [Suspect]
     Active Substance: LINEZOLID
     Indication: Bacteraemia
     Dosage: 600 MG, 2X/DAY
     Route: 048
     Dates: start: 20250613, end: 20250701

REACTIONS (2)
  - Platelet count decreased [Recovering/Resolving]
  - Mucocutaneous haemorrhage [Unknown]

NARRATIVE: CASE EVENT DATE: 20250620
